FAERS Safety Report 9168966 (Version 2)
Quarter: 2013Q4

REPORT INFORMATION
  Report Type: Spontaneous
  Country: US (occurrence: US)
  Receive Date: 20130318
  Receipt Date: 20131121
  Transmission Date: 20140711
  Serious: Yes (Hospitalization, Disabling, Other)
  Sender: FDA-Public Use
  Company Number: US-009507513-1303USA007557

PATIENT
  Sex: Male

DRUGS (3)
  1. FOSAMAX [Suspect]
     Indication: OSTEOPOROSIS
     Dosage: 70 MG, QW
     Route: 048
     Dates: start: 2002, end: 2012
  2. FOSAMAX [Suspect]
     Indication: OSTEOPENIA
  3. ALENDRONATE SODIUM [Suspect]
     Dosage: 35 MG, UNK
     Route: 048

REACTIONS (15)
  - Femur fracture [Unknown]
  - Hip arthroplasty [Unknown]
  - Paraplegia [Not Recovered/Not Resolved]
  - Gun shot wound [Not Recovered/Not Resolved]
  - Femur fracture [Unknown]
  - Intramedullary rod insertion [Unknown]
  - Removal of internal fixation [Unknown]
  - Hip arthroplasty [Unknown]
  - Calcific deposits removal [Unknown]
  - Fracture nonunion [Not Recovered/Not Resolved]
  - Arthritis [Unknown]
  - Single functional kidney [Unknown]
  - Low turnover osteopathy [Unknown]
  - Extraskeletal ossification [Unknown]
  - Arthralgia [Unknown]
